FAERS Safety Report 7270801-3 (Version None)
Quarter: 2011Q1

REPORT INFORMATION
  Report Type: 
  Country: None (occurrence: None)
  Receive Date: 20110202
  Receipt Date: 20110124
  Transmission Date: 20110831
  Serious: Yes (Other)
  Sender: FDA-Public Use
  Company Number: ES-ASTRAZENECA-2011SE04268

PATIENT
  Sex: Male

DRUGS (2)
  1. MERONEM [Suspect]
     Route: 042
     Dates: start: 20100924, end: 20100925
  2. VALPROIC ACID [Interacting]
     Indication: GASTROINTESTINAL DISORDER
     Route: 065
     Dates: start: 20090101

REACTIONS (3)
  - CONVULSION [None]
  - DRUG INTERACTION [None]
  - WRONG TECHNIQUE IN DRUG USAGE PROCESS [None]
